FAERS Safety Report 6104532-X (Version None)
Quarter: 2009Q1

REPORT INFORMATION
  Report Type: 
  Country: None (occurrence: None)
  Receive Date: 20090305
  Receipt Date: 20090302
  Transmission Date: 20090719
  Serious: Yes (Congenital Anomaly)
  Sender: FDA-Public Use
  Company Number: US-BRISTOL-MYERS SQUIBB COMPANY-14526867

PATIENT
  Weight: 3 kg

DRUGS (5)
  1. VIDEX [Suspect]
     Route: 064
     Dates: start: 20080330, end: 20090107
  2. REYATAZ [Suspect]
     Route: 064
     Dates: start: 20080330, end: 20090107
  3. EPIVIR [Suspect]
     Route: 064
     Dates: start: 20080330, end: 20081016
  4. COMBIVIR [Suspect]
     Dosage: TABLET;1DF=150/300MG.
     Route: 064
     Dates: start: 20080330, end: 20081016
  5. RETROVIR [Suspect]
     Route: 064
     Dates: start: 20090107, end: 20090107

REACTIONS (3)
  - ATRIAL SEPTAL DEFECT [None]
  - TRICUSPID VALVE INCOMPETENCE [None]
  - VENTRICULAR SEPTAL DEFECT [None]
